FAERS Safety Report 20460137 (Version 1)
Quarter: 2022Q1

REPORT INFORMATION
  Report Type: Spontaneous
  Country: US (occurrence: US)
  Receive Date: 20220211
  Receipt Date: 20220211
  Transmission Date: 20220423
  Serious: No
  Sender: FDA-Public Use
  Company Number: US-SERVIER-S22000980

PATIENT

DRUGS (2)
  1. ONCASPAR [Suspect]
     Active Substance: PEGASPARGASE
     Indication: Leukaemia
     Dosage: UNK
     Route: 030
     Dates: start: 2021
  2. ONCASPAR [Suspect]
     Active Substance: PEGASPARGASE
     Dosage: UNK
     Route: 030
     Dates: start: 20211018, end: 20211018

REACTIONS (1)
  - Hypersensitivity [Recovered/Resolved]

NARRATIVE: CASE EVENT DATE: 20211018
